FAERS Safety Report 6641709-9 (Version None)
Quarter: 2010Q1

REPORT INFORMATION
  Report Type: 
  Country: None (occurrence: None)
  Receive Date: 20100319
  Receipt Date: 20100311
  Transmission Date: 20100710
  Serious: Yes (Other)
  Sender: FDA-Public Use
  Company Number: US-BIOGENIDEC-2010BI004971

PATIENT
  Age: 37 Year
  Sex: Female

DRUGS (4)
  1. TYSABRI [Suspect]
     Indication: MULTIPLE SCLEROSIS
     Route: 042
     Dates: start: 20090105, end: 20100208
  2. MIRENA [Concomitant]
     Route: 015
  3. ULTRAM [Concomitant]
     Route: 048
  4. AMBIEN [Concomitant]
     Route: 048

REACTIONS (1)
  - MALIGNANT MELANOMA [None]
